FAERS Safety Report 8602270-2 (Version None)
Quarter: 2012Q2

REPORT INFORMATION
  Report Type: 
  Country: None (occurrence: None)
  Receive Date: 20120423
  Receipt Date: 20090407
  Transmission Date: 20120825
  Serious: Yes (Other)
  Sender: FDA-Public Use
  Company Number: PHEH2009US03102

PATIENT
  Sex: Female

DRUGS (12)
  1. SYNTHROID [Concomitant]
  2. CALCIUM CARBONATE [Concomitant]
  3. LOVAZA [Concomitant]
  4. SIMVASTATIN [Concomitant]
  5. IBUPROFEN (ADVIL) [Concomitant]
  6. ZYRTEC [Concomitant]
  7. PRILOSEC [Concomitant]
  8. ATENOLOL [Concomitant]
  9. VITAMIN D [Concomitant]
  10. FEMARA [Suspect]
     Dosage: 2.5 MG, QD, ORAL
     Route: 048
     Dates: start: 20071017
  11. ASPIRIN [Concomitant]
  12. COQ10 (UBIDECARENONE) [Concomitant]

REACTIONS (5)
  - ALOPECIA [None]
  - OEDEMA PERIPHERAL [None]
  - BLOOD CHOLESTEROL INCREASED [None]
  - ARTHRITIS [None]
  - PAIN IN EXTREMITY [None]
